FAERS Safety Report 7691661-2 (Version None)
Quarter: 2011Q3

REPORT INFORMATION
  Report Type: 
  Country: None (occurrence: None)
  Receive Date: 20110818
  Receipt Date: 20110815
  Transmission Date: 20111222
  Serious: Yes (Death, Other)
  Sender: FDA-Public Use
  Company Number: US-MEDIMMUNE-MEDI-0013048

PATIENT
  Sex: Male

DRUGS (3)
  1. PREVACID [Concomitant]
  2. COUMADIN [Concomitant]
  3. SYNAGIS [Suspect]
     Indication: CARDIAC DISORDER
     Route: 030
     Dates: start: 20101014, end: 20110131

REACTIONS (2)
  - INFLUENZA [None]
  - CARDIAC ARREST [None]
